FAERS Safety Report 15233992 (Version 1)
Quarter: 2018Q3

REPORT INFORMATION
  Report Type: Spontaneous
  Country: US (occurrence: US)
  Receive Date: 20180802
  Receipt Date: 20180802
  Transmission Date: 20181010
  Serious: No
  Sender: FDA-Public Use
  Company Number: US-009507513-1807USA011107

PATIENT
  Age: 26 Year
  Sex: Female

DRUGS (5)
  1. UBIDECARENONE [Concomitant]
     Active Substance: UBIDECARENONE
  2. SINEMET [Suspect]
     Active Substance: CARBIDOPA\LEVODOPA
     Indication: LEUKOENCEPHALOPATHY
  3. ASCORBIC ACID. [Concomitant]
     Active Substance: ASCORBIC ACID
  4. VITAMIN E [Concomitant]
     Active Substance: .ALPHA.-TOCOPHEROL
  5. MEMANTINE. [Concomitant]
     Active Substance: MEMANTINE

REACTIONS (1)
  - Product use in unapproved indication [Unknown]
